FAERS Safety Report 6411800-0 (Version None)
Quarter: 2009Q4

REPORT INFORMATION
  Report Type: 
  Country: None (occurrence: None)
  Receive Date: 20091020
  Receipt Date: 20091007
  Transmission Date: 20100525
  Serious: Yes (Hospitalization, Other)
  Sender: FDA-Public Use
  Company Number: 2009AC000153

PATIENT
  Age: 55 Year
  Sex: Male
  Weight: 97.5234 kg

DRUGS (40)
  1. DIGOXIN [Suspect]
     Dosage: 0.25 MG;QD;PO
     Route: 048
  2. HYDROCODONE [Concomitant]
  3. PROMETHAZINE [Concomitant]
  4. CLOBETASOL PROPIONATE [Concomitant]
  5. AMOXICILLIN [Concomitant]
  6. PROPOXYPHENE HCL CAP [Concomitant]
  7. GLIPIZIDE [Concomitant]
  8. FUROSEMIDE [Concomitant]
  9. PREDNISONE ` [Concomitant]
  10. HYDROCHLOROTHIAZIDE [Concomitant]
  11. OMEPRAZOLE [Concomitant]
  12. BACTROBAN [Concomitant]
  13. PLAVIX [Concomitant]
  14. ISOSORBIDE [Concomitant]
  15. FERROUS SULFATE TAB [Concomitant]
  16. GLYBURIDE [Concomitant]
  17. ACETAMINOPHEN [Concomitant]
  18. LEVETIRACETAM [Concomitant]
  19. HYDRALAZINE HCL [Concomitant]
  20. CITALOPRAM HYDROBROMIDE [Concomitant]
  21. AZITHROMYCIN [Concomitant]
  22. ELIDEL [Concomitant]
  23. LEVAQUIN [Concomitant]
  24. SIMVASTATIN [Concomitant]
  25. RANITIDINE [Concomitant]
  26. WARFARIN SODIUM [Concomitant]
  27. PAROXETINE [Concomitant]
  28. POTASSIUM CHLORIDE [Concomitant]
  29. COREG [Concomitant]
  30. IMDUR [Concomitant]
  31. MULTI-VITAMIN [Concomitant]
  32. LEVETIRACETAM [Concomitant]
  33. TEMOVATE GEL [Concomitant]
  34. PLAQUENIL [Concomitant]
  35. PAXIL [Concomitant]
  36. CELEXA [Concomitant]
  37. ASPIRIN [Concomitant]
  38. FOLIC ACID [Concomitant]
  39. DIOVAN [Concomitant]
  40. FUROSEMIDE [Concomitant]

REACTIONS (35)
  - APHASIA [None]
  - ATRIOVENTRICULAR BLOCK FIRST DEGREE [None]
  - CATARACT [None]
  - CONVULSION [None]
  - CUTANEOUS SARCOIDOSIS [None]
  - DIASTOLIC DYSFUNCTION [None]
  - DIZZINESS [None]
  - ELECTROCARDIOGRAM T WAVE INVERSION [None]
  - ERECTILE DYSFUNCTION [None]
  - FATIGUE [None]
  - GYNAECOMASTIA [None]
  - HAEMORRHAGIC STROKE [None]
  - HEMIPARESIS [None]
  - HYPOGLYCAEMIA [None]
  - INJURY [None]
  - ISCHAEMIC CARDIOMYOPATHY [None]
  - ISCHAEMIC STROKE [None]
  - LEFT ATRIAL DILATATION [None]
  - LEFT VENTRICULAR HYPERTROPHY [None]
  - MITRAL VALVE INCOMPETENCE [None]
  - MOOD ALTERED [None]
  - MYOCARDIAL INFARCTION [None]
  - NAUSEA [None]
  - PALPITATIONS [None]
  - PROSTATISM [None]
  - PULMONARY HYPERTENSION [None]
  - RENAL DISORDER [None]
  - RENAL FAILURE ACUTE [None]
  - THERAPEUTIC AGENT TOXICITY [None]
  - TRICUSPID VALVE INCOMPETENCE [None]
  - URINARY RETENTION [None]
  - VISUAL FIELD DEFECT [None]
  - VOMITING [None]
  - WEIGHT DECREASED [None]
  - WEIGHT INCREASED [None]
